FAERS Safety Report 20073006 (Version 2)
Quarter: 2025Q3

REPORT INFORMATION
  Report Type: Spontaneous
  Country: EU (occurrence: EU)
  Receive Date: 20211116
  Receipt Date: 20250825
  Transmission Date: 20251021
  Serious: Yes (Death)
  Sender: AUROBINDO
  Company Number: EU-MYLANLABS-2021M1079026

PATIENT
  Age: 86 Year
  Sex: Female

DRUGS (1)
  1. VORICONAZOLE [Suspect]
     Active Substance: VORICONAZOLE
     Indication: Product used for unknown indication
     Route: 065

REACTIONS (1)
  - Condition aggravated [Fatal]
